FAERS Safety Report 18269434 (Version 3)
Quarter: 2020Q4

REPORT INFORMATION
  Report Type: Report from Study
  Country: CA (occurrence: CA)
  Receive Date: 20200915
  Receipt Date: 20201001
  Transmission Date: 20210113
  Serious: Yes (Hospitalization, Other)
  Sender: FDA-Public Use
  Company Number: CA-TAKEDA-2018TUS018226

PATIENT
  Age: 39 Year
  Sex: Male

DRUGS (5)
  1. VEDOLIZUMAB [Suspect]
     Active Substance: VEDOLIZUMAB
     Dosage: 300 MILLIGRAM
     Route: 042
  2. CANNABIS [Concomitant]
     Active Substance: CANNABIS SATIVA SUBSP. INDICA TOP
     Dosage: 15 MILLIGRAM
     Dates: start: 201801
  3. VEDOLIZUMAB [Suspect]
     Active Substance: VEDOLIZUMAB
     Indication: COLITIS ULCERATIVE
     Dosage: 300 MILLIGRAM
     Route: 042
     Dates: start: 20180220
  4. VEDOLIZUMAB [Suspect]
     Active Substance: VEDOLIZUMAB
     Dosage: 300 MILLIGRAM
     Route: 042
     Dates: end: 20200721
  5. HYDROCORTISONE. [Concomitant]
     Active Substance: HYDROCORTISONE
     Indication: PREMEDICATION
     Dosage: UNK

REACTIONS (11)
  - Haemoglobin decreased [Unknown]
  - Urine analysis abnormal [Unknown]
  - Blood creatinine increased [Unknown]
  - Differential white blood cell count abnormal [Unknown]
  - Complement factor C3 decreased [Unknown]
  - Electrophoresis abnormal [Unknown]
  - Renal disorder [Unknown]
  - Blood albumin decreased [Unknown]
  - Thrombocytopenia [Unknown]
  - Blood chloride increased [Unknown]
  - Complement factor C4 decreased [Unknown]

NARRATIVE: CASE EVENT DATE: 2018
